FAERS Safety Report 9940156 (Version 1)
Quarter: 2014Q1

REPORT INFORMATION
  Report Type: Report from Study
  Country: US (occurrence: US)
  Receive Date: 20140303
  Receipt Date: 20140303
  Transmission Date: 20141002
  Serious: No
  Sender: FDA-Public Use
  Company Number: US-ABBVIE-13P-163-1037953-00

PATIENT
  Age: 59 Year
  Sex: Female

DRUGS (8)
  1. HUMIRA [Suspect]
     Indication: RHEUMATOID ARTHRITIS
  2. FLUOXETINE [Concomitant]
     Indication: PAIN
  3. LUNESTA [Concomitant]
     Indication: INSOMNIA
     Dosage: 1 DOSE AT NIGHT
  4. LEVOTHYROXINE [Concomitant]
     Indication: THYROID DISORDER
     Dosage: ASKED TO D/C BY RHEUMATOLOGIST
  5. GENERIC DIOVAN [Concomitant]
     Indication: BLOOD PRESSURE
  6. HYDROCODONE [Concomitant]
     Indication: PRODUCT USED FOR UNKNOWN INDICATION
     Dosage: 7.5/325MG PRN (USUALLY QD)
  7. PREVACID [Concomitant]
     Indication: PRODUCT USED FOR UNKNOWN INDICATION
  8. NAPROXEN [Concomitant]
     Indication: PRODUCT USED FOR UNKNOWN INDICATION
     Dosage: HAD PROBLEMS TAKING, D/C LAST WEEK

REACTIONS (4)
  - Injection site pain [Recovering/Resolving]
  - Hepatic enzyme increased [Recovering/Resolving]
  - Abdominal pain [Recovering/Resolving]
  - Diarrhoea [Recovered/Resolved with Sequelae]
